FAERS Safety Report 4953677-6 (Version None)
Quarter: 2006Q1

REPORT INFORMATION
  Report Type: 
  Country: None (occurrence: None)
  Receive Date: 20060324
  Receipt Date: 20050414
  Transmission Date: 20060701
  Serious: Yes (Death, Other)
  Sender: FDA-Public Use
  Company Number: US-MERCK-0504USA02966

PATIENT
  Age: 74 Year
  Sex: Male
  Weight: 84 kg

DRUGS (26)
  1. ZOCOR [Concomitant]
     Route: 048
     Dates: start: 19840101
  2. ZOCOR [Concomitant]
     Route: 065
     Dates: start: 19820101
  3. ECOTRIN [Concomitant]
     Route: 065
     Dates: end: 20050101
  4. NEURONTIN [Concomitant]
     Route: 065
     Dates: end: 20050101
  5. ASPIRIN [Concomitant]
     Route: 065
     Dates: start: 19840101
  6. ASPIRIN [Concomitant]
     Route: 065
     Dates: start: 19820101
  7. PLAVIX [Concomitant]
     Indication: ARTERIOSCLEROSIS
     Route: 065
     Dates: start: 19840101
  8. PLAVIX [Concomitant]
     Route: 065
     Dates: start: 19820101
  9. LASIX [Concomitant]
     Route: 065
     Dates: start: 19840101
  10. LASIX [Concomitant]
     Route: 065
     Dates: start: 19820101
  11. VIOXX [Suspect]
     Indication: ARTHRITIS
     Route: 048
     Dates: start: 19970501, end: 20040101
  12. VIOXX [Suspect]
     Indication: ARTERIOSCLEROSIS
     Route: 048
     Dates: start: 19970501, end: 20040101
  13. LOPRESSOR [Concomitant]
     Route: 065
     Dates: end: 20040101
  14. LOPRESSOR [Concomitant]
     Route: 065
     Dates: start: 19820101
  15. LOPRESSOR [Concomitant]
     Route: 065
     Dates: start: 19840101
  16. TOPROL-XL [Concomitant]
     Route: 065
     Dates: end: 20040101
  17. TOPROL-XL [Concomitant]
     Route: 065
     Dates: start: 19840101
  18. TOPROL-XL [Concomitant]
     Route: 065
     Dates: start: 19820101
  19. PROCARDIA [Concomitant]
     Route: 065
     Dates: end: 20050501
  20. PROCARDIA [Concomitant]
     Route: 065
     Dates: start: 19820101
  21. PROCARDIA [Concomitant]
     Route: 065
     Dates: start: 19840101
  22. NITROQUICK [Concomitant]
     Route: 065
     Dates: end: 20050401
  23. COUMADIN [Concomitant]
     Route: 065
     Dates: end: 20050301
  24. COUMADIN [Concomitant]
     Route: 065
     Dates: start: 19840101
  25. COUMADIN [Concomitant]
     Route: 065
     Dates: start: 19820101
  26. ZOCOR [Concomitant]
     Route: 048
     Dates: end: 20050523

REACTIONS (3)
  - CARDIO-RESPIRATORY ARREST [None]
  - DEATH [None]
  - DRUG HYPERSENSITIVITY [None]
